FAERS Safety Report 21245635 (Version 1)
Quarter: 2022Q3

REPORT INFORMATION
  Report Type: Spontaneous
  Country: FR (occurrence: FR)
  Receive Date: 20220824
  Receipt Date: 20220824
  Transmission Date: 20221026
  Serious: Yes (Hospitalization, Other)
  Sender: FDA-Public Use
  Company Number: None

PATIENT
  Age: 23 Year
  Sex: Male

DRUGS (4)
  1. MELATONIN [Suspect]
     Active Substance: MELATONIN
     Indication: Intentional overdose
     Dosage: 45 DOSAGE FORM
     Route: 048
     Dates: start: 20220719, end: 20220719
  2. DIAZEPAM [Suspect]
     Active Substance: DIAZEPAM
     Indication: Intentional overdose
     Route: 048
     Dates: start: 20220719, end: 20220719
  3. CYAMEMAZINE [Suspect]
     Active Substance: CYAMEMAZINE
     Indication: Intentional overdose
     Route: 048
     Dates: start: 20220719, end: 20220719
  4. SERTRALINE [Suspect]
     Active Substance: SERTRALINE HYDROCHLORIDE
     Indication: Intentional overdose
     Route: 048
     Dates: start: 20220719, end: 20220719

REACTIONS (5)
  - Hypotension [Recovered/Resolved]
  - Bradypnoea [Recovered/Resolved]
  - Poisoning deliberate [Recovered/Resolved]
  - Tachycardia [Recovered/Resolved]
  - Coma [Recovered/Resolved]

NARRATIVE: CASE EVENT DATE: 20220719
